FAERS Safety Report 12623391 (Version 8)
Quarter: 2019Q3

REPORT INFORMATION
  Report Type: Spontaneous
  Country: US (occurrence: US)
  Receive Date: 20160804
  Receipt Date: 20190703
  Transmission Date: 20191004
  Serious: Yes (Death, Other)
  Sender: FDA-Public Use
  Company Number: US-ACTELION-A-NJ2016-140091

PATIENT
  Age: 73 Year
  Sex: Female
  Weight: 56.24 kg

DRUGS (7)
  1. UPTRAVI [Suspect]
     Active Substance: SELEXIPAG
     Indication: PULMONARY HYPERTENSION
     Dosage: 1000 MCG, BID
     Route: 048
  2. UPTRAVI [Suspect]
     Active Substance: SELEXIPAG
     Dosage: 800 MCG, BID
     Route: 048
  3. ADCIRCA [Concomitant]
     Active Substance: TADALAFIL
  4. UPTRAVI [Suspect]
     Active Substance: SELEXIPAG
     Dosage: 200 MCG, BID
     Route: 048
     Dates: start: 20160720
  5. UPTRAVI [Suspect]
     Active Substance: SELEXIPAG
     Dosage: 800 MCG IN AM, 1000 MCG IN PM
     Route: 048
  6. UPTRAVI [Suspect]
     Active Substance: SELEXIPAG
     Dosage: 600 MCG, BID
     Route: 048
  7. TYVASO [Concomitant]
     Active Substance: TREPROSTINIL

REACTIONS (14)
  - Pulmonary arterial hypertension [Fatal]
  - Constipation [Unknown]
  - Pain in jaw [Unknown]
  - Spinal column injury [Unknown]
  - Gait disturbance [Unknown]
  - Weight decreased [Unknown]
  - Fall [Unknown]
  - Fractured coccyx [Unknown]
  - Arthralgia [Unknown]
  - Ankle fracture [Unknown]
  - Pain in extremity [Unknown]
  - Abdominal discomfort [Recovered/Resolved]
  - Myalgia [Unknown]
  - Disease complication [Fatal]

NARRATIVE: CASE EVENT DATE: 201608
